FAERS Safety Report 6137418-5 (Version None)
Quarter: 2009Q1

REPORT INFORMATION
  Report Type: 
  Country: None (occurrence: None)
  Receive Date: 20090326
  Receipt Date: 20090311
  Transmission Date: 20090719
  Serious: Yes (Hospitalization, Other)
  Sender: FDA-Public Use
  Company Number: CTI_01005_2009

PATIENT
  Age: 39 Year
  Sex: Female

DRUGS (6)
  1. ZYFLO CR [Suspect]
     Indication: ASTHMA
     Dosage: (DF)
  2. NASACORT [Concomitant]
  3. PEPCID [Concomitant]
  4. ZYRTEC-D 12 HOUR [Concomitant]
  5. POTASSIUM CHLORIDE [Concomitant]
  6. ZYRTEC [Concomitant]

REACTIONS (1)
  - ANAPHYLACTIC REACTION [None]
